FAERS Safety Report 18203606 (Version 3)
Quarter: 2020Q3

REPORT INFORMATION
  Report Type: Spontaneous
  Country: JP (occurrence: JP)
  Receive Date: 20200827
  Receipt Date: 20200922
  Transmission Date: 20201103
  Serious: Yes (Other)
  Sender: FDA-Public Use
  Company Number: JP-SA-2020SA224674

PATIENT

DRUGS (7)
  1. DOCETAXEL. [Suspect]
     Active Substance: DOCETAXEL
     Indication: AMELOBLASTIC CARCINOMA
     Dosage: 8 MG/M2, CONTINUOUS INTRA?ARTERIAL INFUSION
     Route: 013
  2. DOCETAXEL. [Suspect]
     Active Substance: DOCETAXEL
     Dosage: REPEATED FIVE TIMES FOR A TOTAL DOSE OF 60 MG IN THE RIGHT SIDE
     Route: 013
  3. CISPLATIN. [Suspect]
     Active Substance: CISPLATIN
     Dosage: SEVEN TIMES ON BOTH SIDES, FOR A TOTAL DOSE OF 500 MG
     Route: 013
  4. SODIUM THIOSULPHATE [Concomitant]
     Active Substance: SODIUM THIOSULFATE
     Indication: NEUTRALISING ANTIBODIES
     Dosage: 8 G/M2
     Route: 042
  5. SODIUM THIOSULPHATE [Concomitant]
     Active Substance: SODIUM THIOSULFATE
     Dosage: 500 MG
     Route: 042
  6. DOCETAXEL. [Suspect]
     Active Substance: DOCETAXEL
     Dosage: FOUR TIMES FOR A TOTAL DOSE OF 40 MG IN THE OPPOSING SIDE
     Route: 013
  7. CISPLATIN. [Suspect]
     Active Substance: CISPLATIN
     Indication: AMELOBLASTIC CARCINOMA
     Dosage: 40 MG/M2, CONTINUOUS INTRA?ARTERIAL INFUSION
     Route: 013

REACTIONS (6)
  - Skin atrophy [Unknown]
  - Dermatitis [Recovered/Resolved]
  - Optic nerve disorder [Unknown]
  - Retinopathy [Unknown]
  - Neutropenia [Recovered/Resolved]
  - Mucosal inflammation [Recovered/Resolved]
